FAERS Safety Report 9456648 (Version 1)
Quarter: 2013Q3

REPORT INFORMATION
  Report Type: Spontaneous
  Country: US (occurrence: US)
  Receive Date: 20130813
  Receipt Date: 20130813
  Transmission Date: 20140515
  Serious: No
  Sender: FDA-Public Use
  Company Number: US-TEVA-426213USA

PATIENT
  Sex: Male
  Weight: 98.97 kg

DRUGS (4)
  1. NUVIGIL [Suspect]
     Indication: CIRCADIAN RHYTHM SLEEP DISORDER
     Dosage: UP TO 300 MG PER DAY
     Dates: start: 201307
  2. METFORMIN [Concomitant]
     Indication: DIABETES MELLITUS
  3. LOVASTATIN [Concomitant]
     Indication: BLOOD CHOLESTEROL INCREASED
  4. ADDERALL [Concomitant]
     Indication: ATTENTION DEFICIT/HYPERACTIVITY DISORDER

REACTIONS (1)
  - Drug effect decreased [Unknown]
